FAERS Safety Report 8270309-2 (Version None)
Quarter: 2012Q1

REPORT INFORMATION
  Report Type: 
  Country: None (occurrence: None)
  Receive Date: 20120327
  Receipt Date: 20100127
  Transmission Date: 20120608
  Serious: Yes (Other)
  Sender: FDA-Public Use
  Company Number: PHEH2010US01528

PATIENT
  Sex: Female

DRUGS (1)
  1. GLEEVEC [Suspect]
     Indication: GASTROINTESTINAL STROMAL TUMOUR
     Dosage: 400, QD
     Dates: start: 20080101, end: 20100101

REACTIONS (3)
  - PLEURAL EFFUSION [None]
  - MALAISE [None]
  - ATRIAL TACHYCARDIA [None]
